FAERS Safety Report 5635717-4 (Version None)
Quarter: 2008Q1

REPORT INFORMATION
  Report Type: 
  Country: None (occurrence: None)
  Receive Date: 20080220
  Receipt Date: 20080207
  Transmission Date: 20080703
  Serious: Yes (Hospitalization, Other)
  Sender: FDA-Public Use
  Company Number: 2007-03822

PATIENT
  Age: 58 Year
  Sex: Male
  Weight: 78 kg

DRUGS (8)
  1. VELCADE [Suspect]
     Indication: MULTIPLE MYELOMA
     Dosage: 2.40 MG, INTRAVENOUS
     Route: 042
     Dates: start: 20071008, end: 20071101
  2. DEXAMETHASONE TAB [Suspect]
     Indication: MULTIPLE MYELOMA
     Dosage: 40.00 MG
     Dates: start: 20071008, end: 20071101
  3. AMLODIPINE BESYLATE [Concomitant]
  4. FERROUS FUMARATE [Concomitant]
  5. PRIMPERAN TAB [Concomitant]
  6. INPOMP (PANTOPRAZOLE) [Concomitant]
  7. CREON [Concomitant]
  8. ALUMINUM HYDROXIDE AND MAGNESIUM TRISILICATE [Concomitant]

REACTIONS (7)
  - ACUTE ABDOMEN [None]
  - BRONCHOPULMONARY ASPERGILLOSIS [None]
  - CELLULITIS [None]
  - PANCREATITIS HAEMORRHAGIC [None]
  - PANCREATITIS NECROTISING [None]
  - PERITONEAL NECROSIS [None]
  - SEPTIC SHOCK [None]
